FAERS Safety Report 17353384 (Version 10)
Quarter: 2022Q4

REPORT INFORMATION
  Report Type: Other
  Country: DE (occurrence: None)
  Receive Date: 20200131
  Receipt Date: 20221223
  Transmission Date: 20230112
  Serious: Yes (Life-Threatening, Hospitalization)
  Sender: FDA-Public Use
  Company Number: DE-ROCHE-2528579

PATIENT
  Age: 28 Year
  Sex: Female
  Weight: 81 kg

DRUGS (5)
  1. OCRELIZUMAB [Suspect]
     Active Substance: OCRELIZUMAB
     Indication: Multiple sclerosis
     Route: 042
     Dates: start: 20180503
  2. ALBUTEROL [Concomitant]
     Active Substance: ALBUTEROL
     Dates: start: 201703
  3. GLATIRAMER ACETATE [Concomitant]
     Active Substance: GLATIRAMER ACETATE
  4. FEMIBION [Concomitant]
     Dosage: PHASE 1
     Dates: start: 20190617, end: 20190804
  5. FEMIBION [Concomitant]
     Dosage: PHASE 2
     Dates: start: 20190805, end: 20200116

REACTIONS (5)
  - Premature rupture of membranes [Recovered/Resolved]
  - Maternal exposure during pregnancy [Unknown]
  - Hypoglycaemia [Recovered/Resolved]
  - Bradycardia [Recovered/Resolved]
  - Cervical incompetence [Recovered/Resolved]

NARRATIVE: CASE EVENT DATE: 20191206
